FAERS Safety Report 13104736 (Version 2)
Quarter: 2017Q1

REPORT INFORMATION
  Report Type: Spontaneous
  Country: US (occurrence: US)
  Receive Date: 20170111
  Receipt Date: 20170202
  Transmission Date: 20170428
  Serious: No
  Sender: FDA-Public Use
  Company Number: US-PFIZER INC-2017009614

PATIENT
  Age: 62 Year
  Sex: Male

DRUGS (2)
  1. LYRICA [Suspect]
     Active Substance: PREGABALIN
     Dosage: 75 MG THREE TIMES DAILY AND 150MG AT BED TIME
  2. LYRICA [Suspect]
     Active Substance: PREGABALIN
     Indication: PHANTOM PAIN
     Dosage: 75 MG THREE TIMES DAILY AND 75MG AT BED TIME

REACTIONS (2)
  - Influenza [Unknown]
  - Product use issue [Unknown]
